FAERS Safety Report 7902718-2 (Version None)
Quarter: 2011Q4

REPORT INFORMATION
  Report Type: 
  Country: None (occurrence: None)
  Receive Date: 20111109
  Receipt Date: 20111107
  Transmission Date: 20120403
  Serious: Yes (Death, Hospitalization)
  Sender: FDA-Public Use
  Company Number: DE-BRISTOL-MYERS SQUIBB COMPANY-16046146

PATIENT
  Age: 53 Year
  Sex: Male
  Weight: 72 kg

DRUGS (11)
  1. RANITIC [Concomitant]
     Dates: start: 20110812, end: 20110913
  2. ZINACEF [Concomitant]
     Route: 042
     Dates: start: 20110916
  3. METHYLPREDNISOLONE [Concomitant]
     Dosage: IV ROUTE:150MG:14S-15SEP,160MG:16-17SEP,128MG:18-19SEP,16MICROGRAM:16-17SEP ORAL:32MG:1OCT-23OCT11
     Route: 048
     Dates: start: 20110914, end: 20111023
  4. ENOXAPARIN SODIUM [Concomitant]
  5. IBUPROFEN TABLETS [Concomitant]
  6. FLUCONAZOLE [Concomitant]
     Dosage: 300MG:16SEP2011-ONG
     Route: 048
     Dates: start: 20111001
  7. IPILIMUMAB [Suspect]
     Indication: MALIGNANT MELANOMA
     Dosage: NUMBER OF CYCLES:4,LAST INF:22JUL11,RESTARTED:20MAY11-STOPED:22JUL11
     Route: 042
     Dates: start: 20110520, end: 20110722
  8. PANTOPRAZOLE [Concomitant]
     Route: 048
     Dates: start: 20110914
  9. PARACETAMOL [Concomitant]
     Route: 048
     Dates: start: 20110916
  10. VALACICLOVIR [Concomitant]
     Route: 048
     Dates: start: 20111001
  11. PREDNISOLONE [Concomitant]
     Indication: DIARRHOEA
     Dosage: 12AUG11-23AUG;24AUG-13SEP11
     Route: 048
     Dates: start: 20110812, end: 20110913

REACTIONS (7)
  - PAIN [None]
  - VENOUS THROMBOSIS [None]
  - MENINGITIS [None]
  - LARGE INTESTINE PERFORATION [None]
  - DIARRHOEA [None]
  - COLITIS [None]
  - HEADACHE [None]
